FAERS Safety Report 18491525 (Version 1)
Quarter: 2020Q4

REPORT INFORMATION
  Report Type: Spontaneous
  Country: IT (occurrence: IT)
  Receive Date: 20201111
  Receipt Date: 20201111
  Transmission Date: 20210114
  Serious: Yes (Other)
  Sender: FDA-Public Use
  Company Number: IT-AMGEN-ITASP2020181216

PATIENT
  Age: 38 Year
  Sex: Female
  Weight: 56.8 kg

DRUGS (3)
  1. ATEZOLIZUMAB. [Suspect]
     Active Substance: ATEZOLIZUMAB
     Indication: BREAST CANCER
     Dosage: UNK, LAST DOSE BEFORE SAE: 22/SEP/2020
     Route: 042
     Dates: start: 20190930, end: 20200922
  2. PERTUZUMAB. [Suspect]
     Active Substance: PERTUZUMAB
     Indication: BREAST CANCER
     Dosage: 420 MILLIGRAM, LAST DOSE BEFORE SAE: 22/SEP/2020
     Route: 042
     Dates: start: 20190930
  3. TRASTUZUMAB. [Suspect]
     Active Substance: TRASTUZUMAB
     Indication: BREAST CANCER
     Dosage: 342 MILLIGRAM
     Route: 042
     Dates: start: 20190930

REACTIONS (2)
  - Off label use [Unknown]
  - Hyperthyroidism [Not Recovered/Not Resolved]

NARRATIVE: CASE EVENT DATE: 20190930
